FAERS Safety Report 10360042 (Version 1)
Quarter: 2014Q3

REPORT INFORMATION
  Report Type: Spontaneous
  Country: US (occurrence: US)
  Receive Date: 20140804
  Receipt Date: 20140804
  Transmission Date: 20150326
  Serious: Yes (Hospitalization)
  Sender: FDA-Public Use
  Company Number: US-B.I. PHARMACEUTICALS,INC./RIDGEFIELD-2014-BI-35021BP

PATIENT
  Age: 71 Year
  Sex: Male

DRUGS (9)
  1. PRADAXA [Suspect]
     Active Substance: DABIGATRAN ETEXILATE MESYLATE
     Indication: ATRIAL FIBRILLATION
     Dosage: 300 MG
     Route: 048
     Dates: end: 20111125
  2. ZOCOR [Concomitant]
     Active Substance: SIMVASTATIN
     Route: 065
  3. LOPRESSOR [Concomitant]
     Active Substance: METOPROLOL TARTRATE
     Route: 065
  4. ALLOPURINOL. [Concomitant]
     Active Substance: ALLOPURINOL
     Route: 065
  5. NORVASC [Concomitant]
     Active Substance: AMLODIPINE BESYLATE
     Route: 065
  6. ECOTRIN [Concomitant]
     Active Substance: ASPIRIN
     Route: 065
     Dates: end: 20111125
  7. ISOSORBID MONONITRATE [Concomitant]
     Active Substance: ISOSORBIDE MONONITRATE
     Route: 065
  8. ZOLOFT [Concomitant]
     Active Substance: SERTRALINE HYDROCHLORIDE
     Route: 065
  9. HALOBETASOL [Concomitant]
     Route: 065

REACTIONS (2)
  - Haematochezia [Unknown]
  - Haemoglobin decreased [Unknown]

NARRATIVE: CASE EVENT DATE: 20111123
